FAERS Safety Report 21125130 (Version 2)
Quarter: 2023Q1

REPORT INFORMATION
  Report Type: Spontaneous
  Country: SY (occurrence: SY)
  Receive Date: 20220725
  Receipt Date: 20230111
  Transmission Date: 20230417
  Serious: Yes (Congenital Anomaly, Other)
  Sender: FDA-Public Use
  Company Number: SY-NOVARTISPH-NVSC2022SY160911

PATIENT
  Sex: Female
  Weight: 2.2 kg

DRUGS (2)
  1. METHOTREXATE [Suspect]
     Active Substance: METHOTREXATE
     Indication: Foetal exposure during pregnancy
     Dosage: MATERNAL EXPOSURE DURING PREGNANCY: 50 MG, QW (FOR TWO WEEKS)
     Route: 064
     Dates: start: 20210119
  2. METHOTREXATE [Suspect]
     Active Substance: METHOTREXATE
     Dosage: MATERNAL EXPOSURE DURING PREGNANCY : 50 MG, QW (FOR TWO WEEKS)
     Route: 064
     Dates: start: 20210207

REACTIONS (5)
  - Fallot^s tetralogy [Unknown]
  - Cyanosis [Unknown]
  - Low birth weight baby [Unknown]
  - Foetal exposure during pregnancy [Unknown]
  - Live birth [Unknown]
